FAERS Safety Report 5489598-2 (Version None)
Quarter: 2007Q4

REPORT INFORMATION
  Report Type: 
  Country: None (occurrence: None)
  Receive Date: 20071018
  Receipt Date: 20071008
  Transmission Date: 20080405
  Serious: Yes (Hospitalization)
  Sender: FDA-Public Use
  Company Number: CA-MERCK-0710USA02112

PATIENT
  Age: 69 Year
  Sex: Female
  Weight: 68 kg

DRUGS (8)
  1. HYDRODIURIL [Suspect]
     Route: 048
  2. ENBREL [Suspect]
     Indication: RHEUMATOID ARTHRITIS
     Route: 058
     Dates: start: 20060801
  3. CELECOXIB [Concomitant]
     Route: 065
     Dates: start: 20050101
  4. XALATAN [Concomitant]
     Route: 065
     Dates: start: 20021125
  5. ACTONEL [Concomitant]
     Route: 065
     Dates: start: 20051121
  6. LEVOTHYROXINE SODIUM [Concomitant]
     Route: 065
     Dates: start: 20070516
  7. SULFASALAZINE [Concomitant]
     Route: 065
     Dates: start: 20051110
  8. CALCIUM CARBONATE [Concomitant]
     Route: 065
     Dates: start: 20051121

REACTIONS (3)
  - DIARRHOEA [None]
  - HYPONATRAEMIA [None]
  - URINARY TRACT INFECTION [None]
